FAERS Safety Report 8180092-7 (Version None)
Quarter: 2012Q1

REPORT INFORMATION
  Report Type: 
  Country: None (occurrence: None)
  Receive Date: 20120302
  Receipt Date: 20120302
  Transmission Date: 20120608
  Serious: No
  Sender: FDA-Public Use
  Company Number: None

PATIENT
  Age: 54 Year
  Sex: Female
  Weight: 76.203 kg

DRUGS (1)
  1. PRAVASTATIN [Suspect]
     Indication: LOW DENSITY LIPOPROTEIN INCREASED
     Dosage: 20.0 MG
     Route: 048
     Dates: start: 20110601, end: 20111101

REACTIONS (2)
  - MUSCLE DISORDER [None]
  - AMNESIA [None]
